FAERS Safety Report 9199093 (Version 2)
Quarter: 2013Q2

REPORT INFORMATION
  Report Type: Spontaneous
  Country: NO (occurrence: None)
  Receive Date: 20130326
  Receipt Date: 20130401
  Transmission Date: 20140414
  Serious: Yes (Other)
  Sender: FDA-Public Use
  Company Number: 2013-05002

PATIENT
  Age: 91 Year
  Sex: Female

DRUGS (3)
  1. PANTOPRAZOLE SODIUM [Suspect]
     Indication: PRODUCT USED FOR UNKNOWN INDICATION
     Route: 048
  2. FURIX (FUROSEMIDE) [Concomitant]
  3. ALBYL-E [Concomitant]

REACTIONS (13)
  - Disorientation [None]
  - Hallucination [None]
  - Somnolence [None]
  - Abdominal distension [None]
  - Constipation [None]
  - Dry mouth [None]
  - Rash [None]
  - Back pain [None]
  - Product substitution issue [None]
  - Abdominal distension [None]
  - Rash erythematous [None]
  - General physical health deterioration [None]
  - Product quality issue [None]
